APPROVED DRUG PRODUCT: ROSUVASTATIN CALCIUM
Active Ingredient: ROSUVASTATIN CALCIUM
Strength: EQ 5MG BASE
Dosage Form/Route: TABLET;ORAL
Application: A207375 | Product #001 | TE Code: AB
Applicant: SHANDONG NEW TIME PHARMACEUTICAL CO LTD
Approved: May 7, 2019 | RLD: No | RS: No | Type: RX